FAERS Safety Report 12644214 (Version 1)
Quarter: 2016Q3

REPORT INFORMATION
  Report Type: Spontaneous
  Country: JP (occurrence: JP)
  Receive Date: 20160811
  Receipt Date: 20160811
  Transmission Date: 20161109
  Serious: Yes (Hospitalization)
  Sender: FDA-Public Use
  Company Number: JP-ASTRAZENECA-2016SE84764

PATIENT
  Age: 59 Year
  Sex: Female

DRUGS (3)
  1. OXYCONTIN [Concomitant]
     Active Substance: OXYCODONE HYDROCHLORIDE
     Indication: PALLIATIVE CARE
  2. DOCETAXEL. [Concomitant]
     Active Substance: DOCETAXEL
  3. FASLODEX [Suspect]
     Active Substance: FULVESTRANT
     Dosage: 16 INJECTIONS
     Route: 030

REACTIONS (3)
  - Dyspnoea [Unknown]
  - Stomatitis [Unknown]
  - Decreased appetite [Unknown]
